FAERS Safety Report 6163163-6 (Version None)
Quarter: 2009Q2

REPORT INFORMATION
  Report Type: 
  Country: None (occurrence: None)
  Receive Date: 20090420
  Receipt Date: 20090420
  Transmission Date: 20091009
  Serious: No
  Sender: FDA-Public Use
  Company Number: None

PATIENT
  Age: 54 Year
  Sex: Male
  Weight: 81.9 kg

DRUGS (17)
  1. VARENICLINE [Suspect]
     Indication: SMOKING CESSATION THERAPY
     Dosage: 1 MG BID PO
     Route: 048
     Dates: start: 20071127, end: 20071227
  2. AMLODIPINE [Concomitant]
  3. AMOXICILLIN [Concomitant]
  4. ASPIRIN [Concomitant]
  5. BUSPIRONE HCL [Concomitant]
  6. CILOSTAZOL [Concomitant]
  7. CIPROFLOXACIN-DEXAMETH OTIC SUSP [Concomitant]
  8. CLONIDINE [Concomitant]
  9. FLUNISOLIDE NASAL SOLN [Concomitant]
  10. FLUOXETINE HCL [Concomitant]
  11. LISINOPRIL [Concomitant]
  12. METOPROLOL SUCCINATE [Concomitant]
  13. OMEPRAZOLE [Concomitant]
  14. POVIDONE IODINE [Concomitant]
  15. QUETIAPINE FUMARATE [Concomitant]
  16. SODIUM CHLORIDE [Concomitant]
  17. VARDENAFIL [Concomitant]

REACTIONS (1)
  - DYSPHORIA [None]
